FAERS Safety Report 11100190 (Version 4)
Quarter: 2015Q3

REPORT INFORMATION
  Report Type: Spontaneous
  Country: US (occurrence: US)
  Receive Date: 20150508
  Receipt Date: 20150728
  Transmission Date: 20151125
  Serious: Yes (Hospitalization, Disabling, Other)
  Sender: FDA-Public Use
  Company Number: US-SA-2015SA060255

PATIENT
  Age: 71 Year
  Sex: Female
  Weight: 95 kg

DRUGS (1)
  1. AMBIEN [Suspect]
     Active Substance: ZOLPIDEM TARTRATE
     Route: 065
     Dates: start: 20130728

REACTIONS (15)
  - Abdominal pain [Recovering/Resolving]
  - Sternal fracture [Recovering/Resolving]
  - Pallor [Recovering/Resolving]
  - Contusion [Recovering/Resolving]
  - Memory impairment [Recovering/Resolving]
  - Road traffic accident [Recovering/Resolving]
  - Ankle fracture [Recovering/Resolving]
  - Ligament sprain [Recovering/Resolving]
  - Lower limb fracture [Recovering/Resolving]
  - Pain in extremity [Recovering/Resolving]
  - Loss of consciousness [Recovering/Resolving]
  - Wheelchair user [Recovering/Resolving]
  - Joint swelling [Recovering/Resolving]
  - Pelvic fracture [Recovering/Resolving]
  - Feeling abnormal [Recovering/Resolving]

NARRATIVE: CASE EVENT DATE: 20130729
